FAERS Safety Report 23336013 (Version 2)
Quarter: 2024Q1

REPORT INFORMATION
  Report Type: Spontaneous
  Country: PL (occurrence: PL)
  Receive Date: 20231225
  Receipt Date: 20240123
  Transmission Date: 20240409
  Serious: Yes (Hospitalization, Other)
  Sender: FDA-Public Use
  Company Number: PL-MYLANLABS-2023M1131334

PATIENT
  Age: 22 Year
  Sex: Male

DRUGS (13)
  1. ARIPIPRAZOLE [Suspect]
     Active Substance: ARIPIPRAZOLE
     Indication: Psychotic disorder
     Dosage: UNK
     Route: 065
  2. AMOXICILLIN\CLAVULANIC ACID [Suspect]
     Active Substance: AMOXICILLIN\CLAVULANIC ACID
     Indication: COVID-19
     Dosage: UNK
     Route: 065
  3. OLANZAPINE [Suspect]
     Active Substance: OLANZAPINE
     Indication: Psychotic disorder
     Dosage: UNK
     Route: 065
  4. ACETAMINOPHEN [Suspect]
     Active Substance: ACETAMINOPHEN
     Indication: COVID-19
     Dosage: UNK
     Route: 065
  5. PANTOPRAZOLE [Suspect]
     Active Substance: PANTOPRAZOLE
     Indication: COVID-19
     Dosage: UNK
     Route: 065
  6. METRONIDAZOLE [Suspect]
     Active Substance: METRONIDAZOLE
     Indication: COVID-19
     Dosage: UNK
     Route: 065
  7. DEXAMETHASONE [Suspect]
     Active Substance: DEXAMETHASONE
     Indication: COVID-19
     Dosage: UNK
     Route: 065
  8. ENOXAPARIN [Suspect]
     Active Substance: ENOXAPARIN
     Indication: COVID-19
     Dosage: UNK
     Route: 065
  9. CEFTRIAXONE [Suspect]
     Active Substance: CEFTRIAXONE\CEFTRIAXONE SODIUM
     Indication: COVID-19
     Dosage: UNK
     Route: 065
  10. METAMIZOLE [Suspect]
     Active Substance: METAMIZOLE
     Indication: COVID-19
     Dosage: UNK
     Route: 065
  11. TIMONACIC [Suspect]
     Active Substance: TIMONACIC
     Indication: COVID-19
     Dosage: UNK
     Route: 065
  12. ZUCLOPENTHIXOL ACETATE [Suspect]
     Active Substance: ZUCLOPENTHIXOL ACETATE
     Indication: Agitation
     Dosage: 50 MILLIGRAM
     Route: 065
  13. LORAZEPAM [Concomitant]
     Active Substance: LORAZEPAM
     Indication: Catatonia
     Dosage: 10 MILLIGRAM
     Route: 030

REACTIONS (7)
  - Laboratory test abnormal [Unknown]
  - Catatonia [Recovering/Resolving]
  - Therapeutic product effect incomplete [Unknown]
  - Neuroleptic malignant syndrome [Unknown]
  - Drug ineffective [Unknown]
  - Sedation [Unknown]
  - Product use in unapproved indication [Unknown]
